FAERS Safety Report 4872135-0 (Version None)
Quarter: 2005Q4

REPORT INFORMATION
  Report Type: 
  Country: None (occurrence: None)
  Receive Date: 20051230
  Receipt Date: 20051219
  Transmission Date: 20060501
  Serious: Yes (Other)
  Sender: FDA-Public Use
  Company Number: 2005171978

PATIENT
  Age: 77 Year
  Sex: Female
  Weight: 52.1637 kg

DRUGS (11)
  1. ZOLOFT [Suspect]
     Indication: ILL-DEFINED DISORDER
     Dosage: 25 MG (25 MG, 1 IN 1 D), ORAL
     Route: 048
     Dates: start: 20050101
  2. BENADRYL [Suspect]
     Indication: ILL-DEFINED DISORDER
     Dosage: ORAL
     Route: 048
  3. CYMBALTA [Suspect]
     Indication: ILL-DEFINED DISORDER
  4. ALL OTHER THERAPEUTIC PRODUCTS (ALL OTHER THERAPEUTIC PRODUCTS) [Suspect]
     Indication: ILL-DEFINED DISORDER
  5. COZAAR [Concomitant]
  6. LOTREL [Concomitant]
  7. SYNTHROID [Concomitant]
  8. WARFARIN (WARFARIN) [Concomitant]
  9. ZETIA [Concomitant]
  10. LIPITOR [Concomitant]
  11. ATIVAN [Concomitant]

REACTIONS (15)
  - AGITATION [None]
  - ANXIETY [None]
  - CARDIAC OPERATION [None]
  - CONDITION AGGRAVATED [None]
  - DEPENDENCE [None]
  - DEPRESSION [None]
  - DISEASE RECURRENCE [None]
  - DRUG DEPENDENCE [None]
  - DRUG INEFFECTIVE [None]
  - FEELING ABNORMAL [None]
  - INSOMNIA [None]
  - PSYCHOMOTOR HYPERACTIVITY [None]
  - REACTION TO PRESERVATIVES [None]
  - SUICIDAL IDEATION [None]
  - UNEVALUABLE EVENT [None]
